FAERS Safety Report 5362612-0 (Version None)
Quarter: 2007Q2

REPORT INFORMATION
  Report Type: 
  Country: None (occurrence: None)
  Receive Date: 20070619
  Receipt Date: 20070612
  Transmission Date: 20071010
  Serious: Yes (Other)
  Sender: FDA-Public Use
  Company Number: HQWYE272620JUL04

PATIENT
  Sex: Female
  Weight: 71.28 kg

DRUGS (1)
  1. PREMPRO [Suspect]
     Dosage: UNKNOWN
     Dates: start: 19960516, end: 20010824

REACTIONS (2)
  - BREAST CANCER METASTATIC [None]
  - THROMBOSIS [None]
